FAERS Safety Report 7730435-0 (Version None)
Quarter: 2011Q3

REPORT INFORMATION
  Report Type: 
  Country: None (occurrence: None)
  Receive Date: 20110906
  Receipt Date: 20110902
  Transmission Date: 20111222
  Serious: Yes (Life-Threatening, Hospitalization)
  Sender: FDA-Public Use
  Company Number: JP-B.I. PHARMACEUTICALS,INC./RIDGEFIELD-2011-BP-21353NB

PATIENT
  Age: 77 Year
  Sex: Female

DRUGS (9)
  1. MUCOSTA [Concomitant]
     Route: 048
  2. CANDESARTAN CILEXETIL [Concomitant]
     Indication: HYPERTENSION
     Dosage: 8 MG
     Route: 048
     Dates: end: 20110817
  3. SUNRYTHM [Concomitant]
     Indication: ATRIAL FIBRILLATION
     Dosage: 75 MG
     Route: 048
     Dates: end: 20110817
  4. OSPAIN [Concomitant]
     Route: 048
  5. SUNRYTHM [Concomitant]
     Dosage: 50 MG
     Route: 048
     Dates: start: 20110818
  6. VESICARE [Concomitant]
     Dosage: 2.5 MG
     Route: 048
  7. PRADAXA [Suspect]
     Indication: ATRIAL FIBRILLATION
     Dosage: 220 MG
     Route: 048
     Dates: start: 20110714, end: 20110817
  8. AMLODIN OD [Concomitant]
     Indication: HYPERTENSION
     Dosage: 5 MG
     Route: 048
     Dates: end: 20110817
  9. CALCITAMIN [Concomitant]
     Route: 048

REACTIONS (4)
  - SPINAL CORD COMPRESSION [None]
  - GASTROINTESTINAL HAEMORRHAGE [None]
  - FALL [None]
  - BLOOD PRESSURE DECREASED [None]
